FAERS Safety Report 22226875 (Version 1)
Quarter: 2023Q2

REPORT INFORMATION
  Report Type: Spontaneous
  Country: US (occurrence: US)
  Receive Date: 20230419
  Receipt Date: 20230419
  Transmission Date: 20230721
  Serious: Yes (Life-Threatening, Hospitalization, Other)
  Sender: FDA-Public Use
  Company Number: US-BAXTER-2023BAX018261

PATIENT
  Age: 67 Year
  Sex: Female

DRUGS (7)
  1. DEXMEDETOMIDINE [Suspect]
     Active Substance: DEXMEDETOMIDINE
     Indication: Anaesthesia
     Route: 065
  2. LABETALOL HYDROCHLORIDE [Suspect]
     Active Substance: LABETALOL HYDROCHLORIDE
     Indication: Hypertension
     Dosage: 2 DOSES
     Route: 042
  3. LABETALOL HYDROCHLORIDE [Suspect]
     Active Substance: LABETALOL HYDROCHLORIDE
     Indication: Tachycardia
  4. PROPOFOL [Suspect]
     Active Substance: PROPOFOL
     Indication: Anaesthesia
     Route: 065
  5. ETOMIDATE [Concomitant]
     Active Substance: ETOMIDATE
     Route: 065
  6. SUCCINYLCHOLINE [Concomitant]
     Active Substance: SUCCINYLCHOLINE
     Route: 065
  7. FENTANYL [Concomitant]
     Active Substance: FENTANYL
     Route: 065

REACTIONS (12)
  - Phaeochromocytoma crisis [Recovered/Resolved]
  - Stress cardiomyopathy [Recovered/Resolved]
  - Acute kidney injury [Recovered/Resolved]
  - Sinus tachycardia [Recovered/Resolved]
  - Ventricular hypokinesia [Recovered/Resolved]
  - Pyrexia [Recovered/Resolved]
  - Tachycardia [Recovered/Resolved]
  - Hypotension [Recovered/Resolved]
  - Hypertension [Recovered/Resolved]
  - Encephalopathy [Recovered/Resolved]
  - Respiratory distress [Recovered/Resolved]
  - Lethargy [Recovered/Resolved]
